FAERS Safety Report 25446885 (Version 3)
Quarter: 2025Q4

REPORT INFORMATION
  Report Type: Spontaneous
  Country: US (occurrence: None)
  Receive Date: 20250617
  Receipt Date: 20251215
  Transmission Date: 20260118
  Serious: No
  Sender: UCB
  Company Number: US-UCBSA-2025028514

PATIENT
  Age: 59 Year
  Weight: 121.09 kg

DRUGS (2)
  1. BIMZELX [Suspect]
     Active Substance: BIMEKIZUMAB-BKZX
     Indication: Psoriasis
     Dosage: 320 MILLIGRAM, EV 4 WEEKS
  2. METFORMIN [Concomitant]
     Active Substance: METFORMIN HYDROCHLORIDE
     Indication: Product used for unknown indication

REACTIONS (10)
  - Irritable bowel syndrome [Unknown]
  - Pollakiuria [Unknown]
  - Fatigue [Unknown]
  - Pain [Unknown]
  - Gastroenteritis viral [Unknown]
  - Rhinorrhoea [Unknown]
  - Feeling abnormal [Unknown]
  - Peripheral swelling [Unknown]
  - Arthralgia [Unknown]
  - Product dose omission issue [Unknown]
